FAERS Safety Report 16283103 (Version 1)
Quarter: 2019Q2

REPORT INFORMATION
  Report Type: Spontaneous
  Country: US (occurrence: US)
  Receive Date: 20190507
  Receipt Date: 20190507
  Transmission Date: 20190711
  Serious: No
  Sender: FDA-Public Use
  Company Number: US-SUNOVION-2019SUN001804

PATIENT
  Sex: Male
  Weight: 96.6 kg

DRUGS (1)
  1. LONHALA MAGNAIR [Suspect]
     Active Substance: GLYCOPYRROLATE
     Route: 055

REACTIONS (2)
  - Cough [Unknown]
  - Dyspnoea [Unknown]
